FAERS Safety Report 22609464 (Version 1)
Quarter: 2023Q2

REPORT INFORMATION
  Report Type: Spontaneous
  Country: FR (occurrence: FR)
  Receive Date: 20230616
  Receipt Date: 20230616
  Transmission Date: 20230721
  Serious: Yes (Other)
  Sender: FDA-Public Use
  Company Number: FR-ETHYPHARM-2021001826

PATIENT
  Sex: Male

DRUGS (9)
  1. LYRICA [Suspect]
     Active Substance: PREGABALIN
     Indication: Product used for unknown indication
     Dosage: UNK
     Route: 065
  2. BACLOFEN [Suspect]
     Active Substance: BACLOFEN
     Indication: Product used for unknown indication
     Dosage: 200 MILLIGRAM, QD (IN 2 INTAKES)
     Route: 048
     Dates: start: 2023, end: 2023
  3. BACLOFEN [Suspect]
     Active Substance: BACLOFEN
     Dosage: 100 MILLIGRAM, QD
     Route: 048
     Dates: start: 202301, end: 2023
  4. BACLOFEN [Suspect]
     Active Substance: BACLOFEN
     Dosage: 100 MILLIGRAM, QD
     Route: 048
  5. BACLOFEN [Suspect]
     Active Substance: BACLOFEN
     Dosage: 100 MILLIGRAM, QD
     Route: 048
  6. BACLOFEN [Suspect]
     Active Substance: BACLOFEN
     Dosage: UNSPECIFIED DOSE ABOVE 150 MG
     Route: 048
  7. BACLOFEN [Suspect]
     Active Substance: BACLOFEN
     Dosage: UNSPECIFIED DOSE LESS THAN 100 MG
     Route: 048
  8. BACLOFEN [Suspect]
     Active Substance: BACLOFEN
     Dosage: UNSPECIFIED DOSE
     Route: 048
  9. PREGABALIN [Concomitant]
     Active Substance: PREGABALIN
     Dosage: 1200 MILLIGRAM, QD (2 INTAKES OF 600 MG)
     Route: 065
     Dates: start: 2020

REACTIONS (13)
  - Drug abuse [Unknown]
  - Nervousness [Unknown]
  - Energy increased [Unknown]
  - Disturbance in sexual arousal [Unknown]
  - Condition aggravated [Unknown]
  - Dizziness [Unknown]
  - Confusional state [Unknown]
  - Libido decreased [Unknown]
  - Libido increased [Unknown]
  - Euphoric mood [Unknown]
  - Nausea [Unknown]
  - Intentional product use issue [Unknown]
  - Adverse event [Unknown]
